FAERS Safety Report 24278789 (Version 1)
Quarter: 2024Q3

REPORT INFORMATION
  Report Type: Spontaneous
  Country: US (occurrence: None)
  Receive Date: 20240830
  Receipt Date: 20240830
  Transmission Date: 20241016
  Serious: Yes (Life-Threatening, Disabling, Other)
  Sender: Public
  Company Number: None

PATIENT
  Age: 64 Year
  Sex: Female
  Weight: 86.4 kg

DRUGS (4)
  1. ROSUVASTATIN CALCIUM [Suspect]
     Active Substance: ROSUVASTATIN CALCIUM
     Indication: Blood cholesterol
     Dosage: 1 TABLET DAILY ORAL
     Route: 048
     Dates: start: 20240704, end: 20240808
  2. high blood pressure [Concomitant]
  3. METFORMIN [Concomitant]
     Active Substance: METFORMIN HYDROCHLORIDE
  4. NIACIN [Concomitant]
     Active Substance: NIACIN

REACTIONS (9)
  - Muscle atrophy [None]
  - Arthralgia [None]
  - Gait disturbance [None]
  - Fatigue [None]
  - Renal disorder [None]
  - Pain in extremity [None]
  - Asthenia [None]
  - Weight decreased [None]
  - Limb discomfort [None]

NARRATIVE: CASE EVENT DATE: 20240705
